FAERS Safety Report 23021128 (Version 2)
Quarter: 2023Q4

REPORT INFORMATION
  Report Type: Spontaneous
  Country: US (occurrence: US)
  Receive Date: 20231003
  Receipt Date: 20231110
  Transmission Date: 20240110
  Serious: Yes (Other)
  Sender: FDA-Public Use
  Company Number: US-MYLANLABS-2023M1104327

PATIENT
  Sex: Male
  Weight: 68.03 kg

DRUGS (1)
  1. ATORVASTATIN [Suspect]
     Active Substance: ATORVASTATIN
     Indication: Product used for unknown indication
     Dosage: UNK (2 TIMES A WEEK)
     Route: 065

REACTIONS (13)
  - Off label use [Unknown]
  - Renal failure [Unknown]
  - Cardiac failure [Unknown]
  - Myeloproliferative neoplasm [Unknown]
  - Blast crisis in myelogenous leukaemia [Unknown]
  - Thrombocytosis [Unknown]
  - Dyspnoea [Unknown]
  - Leukocytosis [Unknown]
  - Asthenia [Unknown]
  - Haemoglobin decreased [Unknown]
  - Back pain [Unknown]
  - Neck pain [Unknown]
  - Fatigue [Unknown]
